FAERS Safety Report 4683630-1 (Version None)
Quarter: 2005Q2

REPORT INFORMATION
  Report Type: 
  Country: None (occurrence: None)
  Receive Date: 20050602
  Receipt Date: 20050311
  Transmission Date: 20051028
  Serious: No
  Sender: FDA-Public Use
  Company Number: 200510471BWH

PATIENT
  Age: 40 Year
  Sex: Male

DRUGS (7)
  1. LEVITRA [Suspect]
     Indication: ERECTILE DYSFUNCTION
     Dosage: 10 MG, ONCE, ORAL
     Route: 048
     Dates: start: 20050310
  2. VIAGRA [Concomitant]
  3. EFFEXOR [Concomitant]
  4. TRAZODONE [Concomitant]
  5. ATENOLOL [Concomitant]
  6. PROTONIX [Concomitant]
  7. PROPOXYPHENE HCL [Concomitant]

REACTIONS (1)
  - ERECTILE DYSFUNCTION [None]
